FAERS Safety Report 6386363-9 (Version None)
Quarter: 2009Q4

REPORT INFORMATION
  Report Type: 
  Country: None (occurrence: None)
  Receive Date: 20091002
  Receipt Date: 20090925
  Transmission Date: 20100525
  Serious: Yes (Hospitalization, Other)
  Sender: FDA-Public Use
  Company Number: US-AMGEN-QUU361845

PATIENT
  Sex: Male
  Weight: 138 kg

DRUGS (12)
  1. EPOGEN [Suspect]
     Indication: DIALYSIS
     Route: 058
  2. SENSIPAR [Concomitant]
     Indication: HYPERPARATHYROIDISM SECONDARY
     Route: 048
     Dates: start: 20090309
  3. PHOSLO [Concomitant]
     Dates: start: 20090728
  4. INSULIN [Concomitant]
     Dates: start: 20090728
  5. ZOCOR [Concomitant]
     Route: 048
     Dates: start: 20090311
  6. NORVASC [Concomitant]
     Dates: start: 20080908
  7. LOPRESSOR [Concomitant]
     Route: 048
     Dates: start: 20080528
  8. ZEMPLAR [Concomitant]
  9. VENOFER [Concomitant]
  10. UNSPECIFIED VITAMINS [Concomitant]
  11. LANTUS [Concomitant]
     Dates: start: 20080528
  12. UNSPECIFIED MEDICATION [Concomitant]

REACTIONS (7)
  - COLON ADENOMA [None]
  - DEVICE RELATED SEPSIS [None]
  - PANCYTOPENIA [None]
  - PERIPHERAL VASCULAR DISORDER [None]
  - RETICULOCYTE COUNT DECREASED [None]
  - THERAPEUTIC RESPONSE DECREASED [None]
  - WOUND INFECTION STAPHYLOCOCCAL [None]
